FAERS Safety Report 12002990 (Version 1)
Quarter: 2016Q1

REPORT INFORMATION
  Report Type: Spontaneous
  Country: US (occurrence: US)
  Receive Date: 20160204
  Receipt Date: 20160204
  Transmission Date: 20160526
  Serious: Yes (Hospitalization)
  Sender: FDA-Public Use
  Company Number: US-CELGENEUS-USA-2015123548

PATIENT
  Age: 73 Year
  Sex: Male
  Weight: 74.91 kg

DRUGS (7)
  1. REVLIMID [Suspect]
     Active Substance: LENALIDOMIDE
     Route: 048
     Dates: start: 20151216
  2. REVLIMID [Suspect]
     Active Substance: LENALIDOMIDE
     Dosage: 3 MILLIGRAM
     Route: 048
     Dates: start: 201103
  3. REVLIMID [Suspect]
     Active Substance: LENALIDOMIDE
     Route: 048
     Dates: start: 201110
  4. DEXAMETHASONE. [Concomitant]
     Active Substance: DEXAMETHASONE
     Indication: PRODUCT USED FOR UNKNOWN INDICATION
     Route: 065
  5. NINLARO [Concomitant]
     Active Substance: IXAZOMIB
     Indication: PRODUCT USED FOR UNKNOWN INDICATION
     Route: 065
  6. MORPHINE SULFATE. [Concomitant]
     Active Substance: MORPHINE SULFATE
     Indication: PRODUCT USED FOR UNKNOWN INDICATION
     Dosage: 4 MILLIGRAM
     Route: 065
  7. REVLIMID [Suspect]
     Active Substance: LENALIDOMIDE
     Indication: PLASMA CELL MYELOMA
     Route: 048
     Dates: start: 201007

REACTIONS (4)
  - Renal failure [Unknown]
  - Cerebral disorder [Unknown]
  - Confusional state [Unknown]
  - Plasma cell myeloma [Unknown]

NARRATIVE: CASE EVENT DATE: 20160119
